FAERS Safety Report 8547468-7 (Version None)
Quarter: 2012Q3

REPORT INFORMATION
  Report Type: 
  Country: None (occurrence: None)
  Receive Date: 20120727
  Receipt Date: 20120420
  Transmission Date: 20120928
  Serious: No
  Sender: FDA-Public Use
  Company Number: US-ASTRAZENECA-2012SE26034

PATIENT
  Age: 73 Year
  Sex: Female

DRUGS (7)
  1. THYROID MEDICATIONS [Concomitant]
     Indication: HYPOTHYROIDISM
  2. ZOLOFT [Concomitant]
     Indication: ANXIETY
  3. SEROQUEL [Suspect]
     Indication: SLEEP DISORDER
     Route: 048
  4. SEROQUEL [Suspect]
     Route: 048
  5. XANAX [Concomitant]
     Indication: ANXIETY
  6. SEROQUEL [Suspect]
     Indication: MAJOR DEPRESSION
     Route: 048
  7. SEROQUEL [Suspect]
     Route: 048

REACTIONS (12)
  - HYPERSOMNIA [None]
  - HEARING IMPAIRED [None]
  - FEELING ABNORMAL [None]
  - ERUCTATION [None]
  - GAIT DISTURBANCE [None]
  - ACTIVITIES OF DAILY LIVING IMPAIRED [None]
  - DRUG INEFFECTIVE FOR UNAPPROVED INDICATION [None]
  - COORDINATION ABNORMAL [None]
  - INTENTIONAL DRUG MISUSE [None]
  - DIZZINESS [None]
  - DRY MOUTH [None]
  - GASTROOESOPHAGEAL REFLUX DISEASE [None]
